FAERS Safety Report 9296728 (Version 2)
Quarter: 2013Q2

REPORT INFORMATION
  Report Type: Spontaneous
  Country: IN (occurrence: IN)
  Receive Date: 20130517
  Receipt Date: 20130605
  Transmission Date: 20140414
  Serious: Yes (Hospitalization)
  Sender: FDA-Public Use
  Company Number: PHHY2013IN048167

PATIENT
  Age: 16 Year
  Sex: Male

DRUGS (1)
  1. OLANZAPINE [Suspect]
     Dosage: 50 DF, (750 MG TOTAL)

REACTIONS (14)
  - Suicide attempt [Recovered/Resolved]
  - Myoclonus [Recovered/Resolved]
  - Leukocytosis [Recovered/Resolved]
  - Salivary hypersecretion [Recovered/Resolved]
  - Loss of consciousness [Recovered/Resolved]
  - Coma scale abnormal [Recovered/Resolved]
  - Hypotension [Recovered/Resolved]
  - Hyperpyrexia [Recovered/Resolved]
  - Tachycardia [Recovered/Resolved]
  - Muscle rigidity [Recovered/Resolved]
  - Respiratory rate decreased [Recovered/Resolved]
  - Blood creatine phosphokinase increased [Recovered/Resolved]
  - Toxicity to various agents [Recovered/Resolved]
  - Intentional overdose [Unknown]
